FAERS Safety Report 22003954 (Version 1)
Quarter: 2023Q1

REPORT INFORMATION
  Report Type: Spontaneous
  Country: US (occurrence: US)
  Receive Date: 20230217
  Receipt Date: 20230217
  Transmission Date: 20230417
  Serious: Yes (Other)
  Sender: FDA-Public Use
  Company Number: US-SUN PHARMACEUTICAL INDUSTRIES LTD-2023R1-378769

PATIENT
  Age: 27 Year
  Sex: Male

DRUGS (3)
  1. GEMCITABINE [Suspect]
     Active Substance: GEMCITABINE
     Indication: Mixed hepatocellular cholangiocarcinoma
     Dosage: 800 MILLIGRAM/SQ. METER ON DAYS 1 AND 8 OF 21-DAY CYCLE
     Route: 042
  2. CISPLATIN [Suspect]
     Active Substance: CISPLATIN
     Indication: Mixed hepatocellular cholangiocarcinoma
     Dosage: 20 MILLIGRAM/SQ. METER ON DAYS 1 AND 8 OF 21-DAY CYCLE
     Route: 042
  3. LENVATINIB [Suspect]
     Active Substance: LENVATINIB
     Indication: Mixed hepatocellular cholangiocarcinoma
     Dosage: 8 MILLIGRAM, QD
     Route: 048

REACTIONS (2)
  - Hypoxia [Recovering/Resolving]
  - Pulmonary embolism [Recovering/Resolving]
